FAERS Safety Report 8904576 (Version 4)
Quarter: 2013Q2

REPORT INFORMATION
  Report Type: Spontaneous
  Country: US (occurrence: US)
  Receive Date: 20121109
  Receipt Date: 20130418
  Transmission Date: 20140414
  Serious: Yes (Hospitalization, Disabling, Other)
  Sender: FDA-Public Use
  Company Number: US-009507513-1205USA04493

PATIENT
  Sex: Female
  Weight: 79.37 kg

DRUGS (4)
  1. FOSAMAX [Suspect]
     Indication: OSTEOPOROSIS
     Dosage: 35 MG, UNK
     Route: 048
     Dates: start: 20041117
  2. FOSAMAX [Suspect]
     Dosage: 70 MG, QW
     Route: 048
     Dates: start: 20060711
  3. ALENDRONATE SODIUM [Suspect]
     Indication: OSTEOPOROSIS
     Dosage: 70 MG,QW
     Route: 048
     Dates: start: 20080508, end: 20110730
  4. EVISTA [Suspect]
     Indication: OSTEOPOROSIS
     Dosage: 60 MG, UNK
     Route: 048
     Dates: start: 20090423, end: 201104

REACTIONS (54)
  - Femur fracture [Unknown]
  - Intramedullary rod insertion [Unknown]
  - Femur fracture [Unknown]
  - Hip arthroplasty [Unknown]
  - Femur fracture [Not Recovered/Not Resolved]
  - Renal failure chronic [Unknown]
  - Open reduction of fracture [Unknown]
  - Medical device removal [Unknown]
  - Skin lesion excision [Unknown]
  - Skin cancer [Unknown]
  - Urinary tract infection [Unknown]
  - Anaemia postoperative [Recovering/Resolving]
  - Thrombocytopenia [Recovered/Resolved]
  - Uterine dilation and curettage [Unknown]
  - Tonsillectomy [Unknown]
  - Cataract operation [Unknown]
  - Low turnover osteopathy [Not Recovered/Not Resolved]
  - Stress fracture [Not Recovered/Not Resolved]
  - Osteoporosis [Not Recovered/Not Resolved]
  - Road traffic accident [Unknown]
  - Upper limb fracture [Unknown]
  - Hypertension [Not Recovered/Not Resolved]
  - Hypothyroidism [Not Recovered/Not Resolved]
  - Depression [Unknown]
  - Seasonal allergy [Unknown]
  - Motion sickness [Unknown]
  - Urinary tract infection [Unknown]
  - Cough [Unknown]
  - Insomnia [Unknown]
  - Oral surgery [Unknown]
  - Spinal column stenosis [Unknown]
  - Asthma [Unknown]
  - Bronchitis [Unknown]
  - Autoimmune thyroiditis [Unknown]
  - Diverticulum [Unknown]
  - Cystoscopy [Unknown]
  - Metabolic syndrome [Unknown]
  - Impaired fasting glucose [Unknown]
  - Dysthymic disorder [Unknown]
  - Anaemia [Unknown]
  - Stress urinary incontinence [Unknown]
  - Arthritis [Unknown]
  - Osteopenia [Unknown]
  - Haematuria [Unknown]
  - Renal cyst [Unknown]
  - Cyst [Unknown]
  - Dyslipidaemia [Unknown]
  - Osteoarthritis [Unknown]
  - Nocturia [Unknown]
  - Fall [Unknown]
  - Excoriation [Unknown]
  - Facial bones fracture [Unknown]
  - Contusion [Unknown]
  - Constipation [Unknown]
